FAERS Safety Report 23493576 (Version 1)
Quarter: 2024Q1

REPORT INFORMATION
  Report Type: Spontaneous
  Country: US (occurrence: None)
  Receive Date: 20240207
  Receipt Date: 20240207
  Transmission Date: 20240410
  Serious: No
  Sender: FDA-Public Use
  Company Number: 2024A023684

PATIENT
  Sex: Female

DRUGS (1)
  1. TEZSPIRE [Suspect]
     Active Substance: TEZEPELUMAB-EKKO
     Indication: Asthma
     Dosage: UNKNOWN

REACTIONS (22)
  - Bronchospasm [Unknown]
  - Dermatitis allergic [Unknown]
  - Dermatitis allergic [Unknown]
  - Impetigo [Unknown]
  - Rhinitis allergic [Unknown]
  - Cough [Unknown]
  - Asthma [Unknown]
  - Headache [Unknown]
  - Dyspnoea [Unknown]
  - Vitamin B complex deficiency [Unknown]
  - Fatigue [Unknown]
  - Pulmonary function test abnormal [Unknown]
  - Chest pain [Unknown]
  - Wheezing [Unknown]
  - Food allergy [Unknown]
  - Food allergy [Unknown]
  - Seasonal allergy [Unknown]
  - Pruritus [Unknown]
  - Nasal mucosal disorder [Unknown]
  - Nasal congestion [Unknown]
  - Rash [Unknown]
  - Drug ineffective [Unknown]
